FAERS Safety Report 20595684 (Version 2)
Quarter: 2022Q2

REPORT INFORMATION
  Report Type: Spontaneous
  Country: CA (occurrence: CA)
  Receive Date: 20220315
  Receipt Date: 20220630
  Transmission Date: 20220721
  Serious: Yes (Other)
  Sender: FDA-Public Use
  Company Number: CA-SA-SAC20220309001752

PATIENT
  Age: 54 Year
  Sex: Female

DRUGS (12)
  1. METFORMIN HYDROCHLORIDE [Suspect]
     Active Substance: METFORMIN HYDROCHLORIDE
     Indication: Diabetes mellitus
     Dosage: 500 MG, BID
     Route: 048
     Dates: start: 2020
  2. LEFLUNOMIDE [Suspect]
     Active Substance: LEFLUNOMIDE
     Indication: Product used for unknown indication
     Dosage: UNK
     Route: 048
     Dates: start: 2019, end: 2019
  3. FOLIC ACID [Suspect]
     Active Substance: FOLIC ACID
     Indication: Product used for unknown indication
     Dosage: 1 DF, QD
     Route: 048
     Dates: start: 2001
  4. METHOTREXATE [Suspect]
     Active Substance: METHOTREXATE
     Indication: Psoriatic arthropathy
     Dosage: 5 DF, QD
     Route: 048
     Dates: start: 2020
  5. METHOTREXATE SODIUM [Suspect]
     Active Substance: METHOTREXATE SODIUM
     Indication: Product used for unknown indication
     Dosage: UNK, QW
     Route: 058
     Dates: start: 2019
  6. PERINDOPRIL [Suspect]
     Active Substance: PERINDOPRIL
     Indication: Hypertension
     Dosage: 2 MG, QD
     Route: 048
     Dates: start: 2020
  7. DOVONEX [Concomitant]
     Active Substance: CALCIPOTRIENE
     Indication: Product used for unknown indication
     Dosage: UNK
     Route: 061
     Dates: start: 2020
  8. CETIRIZINE HYDROCHLORIDE [Concomitant]
     Active Substance: CETIRIZINE HYDROCHLORIDE
     Indication: Seasonal allergy
     Dosage: UNK
     Route: 048
     Dates: start: 2021
  9. SULFASALAZINE [Concomitant]
     Active Substance: SULFASALAZINE
     Indication: Product used for unknown indication
     Dosage: UNK
  10. VITAMIN D3 [Concomitant]
     Active Substance: CHOLECALCIFEROL
     Indication: Product used for unknown indication
     Dosage: UNK, QD
     Route: 048
     Dates: start: 202109
  11. CINNAMON\HERBALS [Concomitant]
     Active Substance: CINNAMON\HERBALS
     Indication: Product used for unknown indication
     Dosage: 2 DF, QD
     Route: 048
  12. CINNAMON [CINNAMOMUM VERUM] [Concomitant]
     Dosage: 2 DF, QD
     Route: 048
     Dates: start: 202109

REACTIONS (6)
  - Abdominal discomfort [Unknown]
  - Hepatic enzyme increased [Unknown]
  - Pain [Unknown]
  - Pain of skin [Unknown]
  - Psoriatic arthropathy [Unknown]
  - Pruritus [Unknown]
